FAERS Safety Report 17433326 (Version 1)
Quarter: 2020Q1

REPORT INFORMATION
  Report Type: Spontaneous
  Country: FR (occurrence: FR)
  Receive Date: 20200219
  Receipt Date: 20200219
  Transmission Date: 20200409
  Serious: Yes (Hospitalization, Other)
  Sender: FDA-Public Use
  Company Number: FR-AUROBINDO-AUR-APL-2020-008266

PATIENT
  Age: 26 Year
  Sex: Male

DRUGS (1)
  1. CLOZAPINE. [Suspect]
     Active Substance: CLOZAPINE
     Indication: DELIRIUM
     Dosage: 250 MILLIGRAM
     Route: 048
     Dates: start: 20191227

REACTIONS (3)
  - Hyperleukocytosis [Unknown]
  - Gastric disorder [Unknown]
  - Neutrophil count [Unknown]

NARRATIVE: CASE EVENT DATE: 20200113
